FAERS Safety Report 9409632 (Version 1)
Quarter: 2013Q3

REPORT INFORMATION
  Report Type: Spontaneous
  Country: US (occurrence: US)
  Receive Date: 20130716
  Receipt Date: 20130716
  Transmission Date: 20140515
  Serious: Yes (Hospitalization)
  Sender: FDA-Public Use
  Company Number: 1715958

PATIENT
  Age: 65 Year
  Sex: Male

DRUGS (4)
  1. LIDOCAINE 1% [Suspect]
     Indication: ROTATOR CUFF SYNDROME
     Route: 014
     Dates: start: 20130416
  2. LIDOCAINE 1% [Suspect]
     Indication: ROTATOR CUFF SYNDROME
     Route: 014
     Dates: start: 20130416
  3. KENALOG [Suspect]
     Indication: ROTATOR CUFF SYNDROME
     Route: 014
     Dates: start: 20130416
  4. KENALOG [Suspect]
     Indication: ROTATOR CUFF SYNDROME
     Route: 014
     Dates: start: 20130416

REACTIONS (4)
  - Staphylococcal infection [None]
  - Post procedural infection [None]
  - Inadequate aseptic technique in use of product [None]
  - Infection in an immunocompromised host [None]
